FAERS Safety Report 16263633 (Version 1)
Quarter: 2019Q2

REPORT INFORMATION
  Report Type: Spontaneous
  Country: US (occurrence: US)
  Receive Date: 20190502
  Receipt Date: 20190502
  Transmission Date: 20190711
  Serious: Yes (Other)
  Sender: FDA-Public Use
  Company Number: PHEH2019US017919

PATIENT
  Sex: Female

DRUGS (1)
  1. RECLAST [Suspect]
     Active Substance: ZOLEDRONIC ACID
     Indication: OSTEOPOROSIS
     Route: 041
     Dates: start: 2005

REACTIONS (7)
  - Tooth disorder [Unknown]
  - Toothache [Unknown]
  - Dental fistula [Unknown]
  - Tooth loss [Unknown]
  - Trismus [Unknown]
  - Tooth infection [Unknown]
  - Pain in jaw [Unknown]

NARRATIVE: CASE EVENT DATE: 2013
